FAERS Safety Report 9107389 (Version 1)
Quarter: 2013Q1

REPORT INFORMATION
  Report Type: Spontaneous
  Country: US (occurrence: US)
  Receive Date: 20130221
  Receipt Date: 20130221
  Transmission Date: 20140127
  Serious: Yes (Disabling)
  Sender: FDA-Public Use
  Company Number: US-009507513-1302USA009725

PATIENT
  Age: 86 Year
  Sex: Female

DRUGS (1)
  1. MK-0966 [Suspect]
     Indication: RHEUMATOID ARTHRITIS
     Dosage: 5 MG, BID
     Route: 048
     Dates: start: 20121205, end: 20121227

REACTIONS (3)
  - Fatigue [Unknown]
  - Asthenia [Unknown]
  - Disorientation [Unknown]
